FAERS Safety Report 7177053-3 (Version None)
Quarter: 2010Q4

REPORT INFORMATION
  Report Type: 
  Country: None (occurrence: None)
  Receive Date: 20101220
  Receipt Date: 20101208
  Transmission Date: 20110411
  Serious: Yes (Other)
  Sender: FDA-Public Use
  Company Number: CA-SANOFI-AVENTIS-2010SA074170

PATIENT
  Age: 67 Year
  Sex: Male

DRUGS (9)
  1. MULTAQ [Suspect]
     Indication: ATRIAL FIBRILLATION
     Route: 048
     Dates: start: 20100201
  2. WARFARIN SODIUM [Concomitant]
     Indication: ATRIAL FIBRILLATION
     Route: 048
  3. DIGOXIN [Concomitant]
     Route: 048
  4. EFFEXOR [Concomitant]
     Indication: DEPRESSION
     Route: 048
  5. OTHER HYPNOTICS AND SEDATIVES [Concomitant]
     Indication: SLEEP DISORDER
     Route: 048
  6. ALL OTHER THERAPEUTIC PRODUCTS [Concomitant]
     Route: 048
  7. THYROID [Concomitant]
     Indication: THYROID DISORDER
     Route: 048
  8. ATIVAN [Concomitant]
     Indication: POST-TRAUMATIC STRESS DISORDER
     Route: 048
  9. ALL OTHER THERAPEUTIC PRODUCTS [Concomitant]
     Indication: ANGINA PECTORIS
     Route: 048

REACTIONS (7)
  - DIZZINESS [None]
  - DYSPHONIA [None]
  - DYSPNOEA [None]
  - FATIGUE [None]
  - OEDEMA PERIPHERAL [None]
  - PERICARDIAL EFFUSION [None]
  - RASH [None]
